FAERS Safety Report 9805281 (Version 1)
Quarter: 2014Q1

REPORT INFORMATION
  Report Type: Spontaneous
  Country: US (occurrence: None)
  Receive Date: 20140107
  Receipt Date: 20140107
  Transmission Date: 20141002
  Serious: Yes (Other)
  Sender: FDA-Public Use
  Company Number: None

PATIENT
  Age: 75 Year
  Sex: Male
  Weight: 82.7 kg

DRUGS (1)
  1. NITROFURANTOIN [Suspect]
     Indication: PULMONARY FIBROSIS
     Route: 048
     Dates: start: 20130820, end: 20130826

REACTIONS (1)
  - Pulmonary fibrosis [None]
